FAERS Safety Report 6210781-2 (Version None)
Quarter: 2009Q2

REPORT INFORMATION
  Report Type: 
  Country: None (occurrence: None)
  Receive Date: 20090601
  Receipt Date: 20090518
  Transmission Date: 20091009
  Serious: Yes (Death, Other)
  Sender: FDA-Public Use
  Company Number: NZ-MYLANLABS-2009S1008755

PATIENT
  Sex: Male

DRUGS (5)
  1. OMEPRAZOLE [Suspect]
     Indication: DRUG USE FOR UNKNOWN INDICATION
     Route: 048
     Dates: end: 20070101
  2. CITALOPRAM HYDROBROMIDE [Suspect]
     Indication: DEPRESSION
     Route: 048
     Dates: end: 20070101
  3. METOPROLOL SUCCINATE [Suspect]
     Indication: DRUG USE FOR UNKNOWN INDICATION
     Dates: end: 20070101
  4. METFORMIN HYDROCHLORIDE [Suspect]
     Indication: TYPE 2 DIABETES MELLITUS
     Route: 048
     Dates: end: 20070101
  5. SIMVASTATIN [Suspect]
     Indication: DRUG USE FOR UNKNOWN INDICATION
     Route: 048
     Dates: end: 20070101

REACTIONS (2)
  - MUSCULAR WEAKNESS [None]
  - SUDDEN DEATH [None]
